FAERS Safety Report 6025205-8 (Version None)
Quarter: 2008Q4

REPORT INFORMATION
  Report Type: 
  Country: None (occurrence: None)
  Receive Date: 20081229
  Receipt Date: 20081229
  Transmission Date: 20090506
  Serious: Yes (Life-Threatening, Other)
  Sender: FDA-Public Use
  Company Number: None

PATIENT
  Age: 39 Year
  Sex: Male
  Weight: 72.5755 kg

DRUGS (4)
  1. EFFEXOR XR [Suspect]
     Indication: ANXIETY
     Dosage: 1 CAPSULE DAILY ORALLY
     Route: 048
     Dates: start: 20081127, end: 20081130
  2. EFFEXOR XR [Suspect]
     Indication: DEPRESSION
     Dosage: 1 CAPSULE DAILY ORALLY
     Route: 048
     Dates: start: 20081127, end: 20081130
  3. EFFEXOR XR [Suspect]
     Indication: SUICIDAL IDEATION
     Dosage: 1 CAPSULE DAILY ORALLY
     Route: 048
     Dates: start: 20081127, end: 20081130
  4. TRAMADOL HCL [Suspect]
     Indication: BACK PAIN
     Dosage: 1 TABLET EVERY 6 HRS ORALLY
     Route: 048
     Dates: start: 20081105, end: 20081130

REACTIONS (13)
  - AGGRESSION [None]
  - AGITATION [None]
  - CHEST PAIN [None]
  - CHILLS [None]
  - CONFUSIONAL STATE [None]
  - DELIRIUM [None]
  - DIARRHOEA [None]
  - DRUG WITHDRAWAL SYNDROME [None]
  - HYPERHIDROSIS [None]
  - MENTAL DISORDER [None]
  - MUSCLE SPASMS [None]
  - SEROTONIN SYNDROME [None]
  - VOMITING [None]
